FAERS Safety Report 5039415-X (Version None)
Quarter: 2006Q2

REPORT INFORMATION
  Report Type: 
  Country: None (occurrence: None)
  Receive Date: 20060629
  Receipt Date: 20060619
  Transmission Date: 20061013
  Serious: Yes (Hospitalization)
  Sender: FDA-Public Use
  Company Number: US-AMGEN-US183551

PATIENT
  Age: 66 Year
  Sex: Male

DRUGS (1)
  1. NEULASTA [Suspect]
     Indication: MYELODYSPLASTIC SYNDROME
     Route: 058
     Dates: start: 20050601

REACTIONS (4)
  - BONE PAIN [None]
  - HEART RATE INCREASED [None]
  - HYPERHIDROSIS [None]
  - PYREXIA [None]
